FAERS Safety Report 7673624-6 (Version None)
Quarter: 2011Q3

REPORT INFORMATION
  Report Type: 
  Country: None (occurrence: None)
  Receive Date: 20110810
  Receipt Date: 20110731
  Transmission Date: 20111222
  Serious: Yes (Hospitalization)
  Sender: FDA-Public Use
  Company Number: PHHY2011US63971

PATIENT
  Sex: Female
  Weight: 138 kg

DRUGS (11)
  1. PREDNISONE [Concomitant]
     Indication: RHEUMATOID ARTHRITIS
     Dosage: 10 MG, Q.A.M.
  2. FOLIC ACID [Concomitant]
     Dosage: 2 MG,DAILY
  3. RECLAST [Suspect]
     Indication: OSTEOPOROSIS POSTMENOPAUSAL
     Dosage: 5 MG,
     Route: 042
     Dates: start: 20091209
  4. FERROUS SULFATE TAB [Concomitant]
     Indication: CONVULSION
     Dosage: UNK UKN, UNK
     Route: 048
  5. VITAMIN D [Concomitant]
     Indication: COELIAC DISEASE
     Dosage: 1000 IU, DAILY
     Route: 048
  6. ASPIRIN [Concomitant]
     Dosage: 325 MG, UNK
  7. LAMICTAL [Concomitant]
     Indication: TRANSIENT ISCHAEMIC ATTACK
     Dosage: UNK UKN, UNK
  8. CALCIUM CARBONATE [Concomitant]
     Indication: COELIAC DISEASE
     Dosage: 500 MG, DAILY
  9. RECLAST [Suspect]
     Dosage: 5 MG,
     Route: 042
     Dates: start: 20101215
  10. METHOTREXATE [Concomitant]
     Indication: SJOGREN'S SYNDROME
     Dosage: 12.5 MG, WEEKLY
     Route: 048
  11. AMLODIPINE [Concomitant]
     Indication: CONVULSION
     Dosage: UNK UKN, UNK
     Route: 048

REACTIONS (19)
  - FEMUR FRACTURE [None]
  - FALL [None]
  - JOINT INSTABILITY [None]
  - ARTHRALGIA [None]
  - OEDEMA PERIPHERAL [None]
  - STRESS FRACTURE [None]
  - BONE DENSITY ABNORMAL [None]
  - BLOOD PRESSURE ABNORMAL [None]
  - PAIN [None]
  - GAIT DISTURBANCE [None]
  - BONE PAIN [None]
  - AREFLEXIA [None]
  - LIMB DISCOMFORT [None]
  - JOINT SWELLING [None]
  - PARAESTHESIA [None]
  - FRACTURE [None]
  - PAIN IN EXTREMITY [None]
  - RADICULOPATHY [None]
  - TENDERNESS [None]
